FAERS Safety Report 12730915 (Version 2)
Quarter: 2016Q4

REPORT INFORMATION
  Report Type: Spontaneous
  Country: US (occurrence: US)
  Receive Date: 20160911
  Receipt Date: 20161020
  Transmission Date: 20170207
  Serious: No
  Sender: FDA-Public Use
  Company Number: US-ASTRAZENECA-2016SE92927

PATIENT
  Sex: Female
  Weight: 49.9 kg

DRUGS (2)
  1. SYMBICORT [Suspect]
     Active Substance: BUDESONIDE\FORMOTEROL FUMARATE DIHYDRATE
     Indication: ASTHMA
     Dosage: 160/4.5 MCG
     Route: 055
     Dates: start: 20160824
  2. SYMBICORT [Suspect]
     Active Substance: BUDESONIDE\FORMOTEROL FUMARATE DIHYDRATE
     Indication: EMPHYSEMA
     Dosage: 160/4.5 MCG
     Route: 055
     Dates: start: 20160824

REACTIONS (5)
  - Neuropathy peripheral [Unknown]
  - Product quality issue [Unknown]
  - Burning sensation [Unknown]
  - Intentional product misuse [Unknown]
  - Off label use [Unknown]
